FAERS Safety Report 10245168 (Version 3)
Quarter: 2014Q3

REPORT INFORMATION
  Report Type: Spontaneous
  Country: US (occurrence: US)
  Receive Date: 20140618
  Receipt Date: 20140717
  Transmission Date: 20150326
  Serious: No
  Sender: FDA-Public Use
  Company Number: US-009507513-1406USA005267

PATIENT
  Age: 67 Year
  Sex: Male
  Weight: 82.54 kg

DRUGS (8)
  1. DULERA [Suspect]
     Active Substance: FORMOTEROL FUMARATE DIHYDRATE\MOMETASONE FUROATE
     Indication: ALLERGIC RESPIRATORY SYMPTOM
     Dosage: 2 PUFFS TWICE A DAY
     Route: 055
     Dates: start: 20131001, end: 20140617
  2. BRIMONIDINE TARTRATE. [Concomitant]
     Active Substance: BRIMONIDINE TARTRATE
     Indication: GLAUCOMA
     Dosage: UNK
  3. DYMISTA [Concomitant]
     Active Substance: AZELASTINE HYDROCHLORIDE\FLUTICASONE PROPIONATE
     Dosage: UNK
     Route: 045
     Dates: start: 2013, end: 20140617
  4. TIMOLOL MALEATE. [Concomitant]
     Active Substance: TIMOLOL MALEATE
     Indication: GLAUCOMA
     Dosage: UNK
  5. DORZOLAMIDE HYDROCHLORIDE. [Concomitant]
     Active Substance: DORZOLAMIDE HYDROCHLORIDE
     Indication: GLAUCOMA
     Dosage: UNK
  6. LUMIGAN [Concomitant]
     Active Substance: BIMATOPROST
     Indication: GLAUCOMA
     Dosage: UNK
  7. DULERA [Suspect]
     Active Substance: FORMOTEROL FUMARATE DIHYDRATE\MOMETASONE FUROATE
     Indication: COUGH
     Dosage: USED WHEN NEEDED
     Route: 055
     Dates: start: 201312
  8. LATANOPROST. [Concomitant]
     Active Substance: LATANOPROST
     Indication: GLAUCOMA
     Dosage: UNK

REACTIONS (8)
  - Photopsia [Recovering/Resolving]
  - Inappropriate schedule of drug administration [Unknown]
  - Cataract [Recovered/Resolved]
  - Drug ineffective [Recovered/Resolved]
  - Intraocular pressure test abnormal [Recovering/Resolving]
  - Visual impairment [Recovering/Resolving]
  - Sinus disorder [Recovering/Resolving]
  - Vision blurred [Recovered/Resolved]

NARRATIVE: CASE EVENT DATE: 201310
